FAERS Safety Report 12767172 (Version 1)
Quarter: 2016Q3

REPORT INFORMATION
  Report Type: Report from Study
  Country: US (occurrence: US)
  Receive Date: 20160921
  Receipt Date: 20160921
  Transmission Date: 20161109
  Serious: Yes (Hospitalization)
  Sender: FDA-Public Use
  Company Number: US-EISAI MEDICAL RESEARCH-EC-2016-015930

PATIENT
  Age: 38 Year
  Sex: Male
  Weight: 78.02 kg

DRUGS (6)
  1. LENVIMA [Suspect]
     Active Substance: LENVATINIB
     Route: 048
     Dates: start: 201607, end: 2016
  2. LEVOTHYROXINE. [Concomitant]
     Active Substance: LEVOTHYROXINE
  3. LENVIMA [Suspect]
     Active Substance: LENVATINIB
     Indication: THYROID CANCER
     Route: 048
     Dates: start: 20160402, end: 20160712
  4. MUCINEX [Concomitant]
     Active Substance: GUAIFENESIN
  5. TRAMADOL. [Concomitant]
     Active Substance: TRAMADOL
  6. LENVIMA [Suspect]
     Active Substance: LENVATINIB
     Route: 048
     Dates: start: 2016, end: 2016

REACTIONS (14)
  - Pancreatitis [Unknown]
  - Dry mouth [Unknown]
  - Chest discomfort [Unknown]
  - Back pain [Unknown]
  - Feeling of body temperature change [Unknown]
  - Productive cough [Unknown]
  - Nausea [Unknown]
  - Toothache [Unknown]
  - Oropharyngeal pain [Unknown]
  - Abdominal pain upper [Unknown]
  - Blood pressure increased [Unknown]
  - Haematemesis [Unknown]
  - Gastrointestinal ulcer [Unknown]
  - Spinal pain [Unknown]

NARRATIVE: CASE EVENT DATE: 2016
